FAERS Safety Report 7177089-2 (Version None)
Quarter: 2010Q4

REPORT INFORMATION
  Report Type: 
  Country: None (occurrence: None)
  Receive Date: 20101216
  Receipt Date: 20101216
  Transmission Date: 20110411
  Serious: No
  Sender: FDA-Public Use
  Company Number: None

PATIENT
  Sex: Female
  Weight: 54.4316 kg

DRUGS (1)
  1. HISTAMINE - POSITIVE SKIN TEST CONTROLS MFG HOLLISTER - STIER # 7099ED [Suspect]
     Indication: DRUG HYPERSENSITIVITY
     Dosage: SKIN TEST RIGHT FORARM
     Dates: start: 20101006

REACTIONS (8)
  - CHEST DISCOMFORT [None]
  - CONFUSIONAL STATE [None]
  - DIZZINESS [None]
  - DYSPNOEA [None]
  - ERYTHEMA [None]
  - MALAISE [None]
  - THERMAL BURN [None]
  - TREMOR [None]
